FAERS Safety Report 14176260 (Version 2)
Quarter: 2018Q2

REPORT INFORMATION
  Report Type: Spontaneous
  Country: US (occurrence: US)
  Receive Date: 20171109
  Receipt Date: 20180605
  Transmission Date: 20180711
  Serious: Yes (Hospitalization, Other)
  Sender: FDA-Public Use
  Company Number: US-DSJP-DSU-2017-139756

PATIENT

DRUGS (1)
  1. BENICAR [Suspect]
     Active Substance: OLMESARTAN MEDOXOMIL
     Indication: PRODUCT USED FOR UNKNOWN INDICATION
     Dosage: 5 MG, QD
     Route: 048
     Dates: start: 20070119

REACTIONS (8)
  - Ileus [Unknown]
  - Bandaemia [Unknown]
  - Acute kidney injury [Unknown]
  - Septic shock [Recovering/Resolving]
  - Hypovolaemic shock [Unknown]
  - Sprue-like enteropathy [Unknown]
  - Diverticular perforation [Recovering/Resolving]
  - Abdominal sepsis [Unknown]

NARRATIVE: CASE EVENT DATE: 201612
